FAERS Safety Report 8522066-X (Version None)
Quarter: 2012Q3

REPORT INFORMATION
  Report Type: 
  Country: None (occurrence: None)
  Receive Date: 20120719
  Receipt Date: 20120709
  Transmission Date: 20120928
  Serious: Yes (Other)
  Sender: FDA-Public Use
  Company Number: JP-VERTEX PHARMACEUTICALS INC.-AE-2012-010179

PATIENT
  Age: 26 Year
  Sex: Female

DRUGS (5)
  1. RIBAVIRIN [Concomitant]
     Indication: HEPATITIS C
     Route: 048
     Dates: start: 20120323
  2. TELAVIC (TELAPREVIR) [Suspect]
     Indication: HEPATITIS C
     Route: 048
     Dates: start: 20120323, end: 20120614
  3. PEGINTERFERON ALFA-2B [Concomitant]
     Indication: HEPATITIS C
     Route: 058
     Dates: start: 20120323, end: 20120607
  4. PEGINTERFERON ALFA-2B [Concomitant]
     Route: 058
     Dates: start: 20120615
  5. PEGINTERFERON ALFA-2B [Concomitant]
     Route: 058
     Dates: start: 20120608, end: 20120614

REACTIONS (1)
  - WHITE BLOOD CELL COUNT DECREASED [None]
